FAERS Safety Report 6905537-9 (Version None)
Quarter: 2010Q3

REPORT INFORMATION
  Report Type: 
  Country: None (occurrence: None)
  Receive Date: 20100804
  Receipt Date: 20100723
  Transmission Date: 20110219
  Serious: Yes (Other)
  Sender: FDA-Public Use
  Company Number: JP-PFIZER INC-2010079768

PATIENT
  Age: 62 Year
  Sex: Male

DRUGS (1)
  1. ZYVOX [Suspect]
     Indication: STAPHYLOCOCCAL INFECTION
     Dosage: 600 MG, 1X/DAY
     Route: 048
     Dates: start: 20100419, end: 20100505

REACTIONS (3)
  - DECREASED APPETITE [None]
  - DEHYDRATION [None]
  - HYPOTENSION [None]
